FAERS Safety Report 6267563-5 (Version None)
Quarter: 2009Q3

REPORT INFORMATION
  Report Type: 
  Country: None (occurrence: None)
  Receive Date: 20090714
  Receipt Date: 20090707
  Transmission Date: 20100115
  Serious: Yes (Hospitalization)
  Sender: FDA-Public Use
  Company Number: FR-GENENTECH-286411

PATIENT
  Sex: Male

DRUGS (4)
  1. RAPTIVA [Suspect]
     Indication: PSORIASIS
     Dosage: 0.65 ML, 1/WEEK
     Route: 058
     Dates: start: 20081001, end: 20090201
  2. METHOTREXATE [Suspect]
     Indication: PSORIASIS
     Dosage: 10 MG, 1/WEEK
     Route: 048
     Dates: start: 20060401, end: 20090201
  3. CYCLOSPORINE [Suspect]
     Indication: PSORIASIS
     Dosage: UNK
     Dates: end: 20060401
  4. SORIATANE [Suspect]
     Indication: PSORIASIS
     Dosage: UNK
     Route: 048
     Dates: end: 20040101

REACTIONS (1)
  - PLASMACYTOMA [None]
